FAERS Safety Report 7287730-1 (Version None)
Quarter: 2011Q1

REPORT INFORMATION
  Report Type: 
  Country: None (occurrence: None)
  Receive Date: 20110211
  Receipt Date: 20110203
  Transmission Date: 20110831
  Serious: Yes (Other)
  Sender: FDA-Public Use
  Company Number: US-B.I. PHARMACEUTICALS,INC./RIDGEFIELD-2011-BP-02234PF

PATIENT
  Sex: Male

DRUGS (2)
  1. SPIRIVA [Suspect]
     Route: 065
  2. CHANTIX [Suspect]

REACTIONS (2)
  - LUNG HYPERINFLATION [None]
  - CHRONIC OBSTRUCTIVE PULMONARY DISEASE [None]
